FAERS Safety Report 7084074-8 (Version None)
Quarter: 2010Q4

REPORT INFORMATION
  Report Type: 
  Country: None (occurrence: None)
  Receive Date: 20101104
  Receipt Date: 20100913
  Transmission Date: 20110411
  Serious: No
  Sender: FDA-Public Use
  Company Number: US-BAYER-201021902BCC

PATIENT
  Age: 54 Year
  Sex: Female
  Weight: 70 kg

DRUGS (7)
  1. ALEVE [Suspect]
     Indication: TENDONITIS
     Dosage: TOTAL DAILY DOSE: 440 MG  UNIT DOSE: 220 MG
     Route: 048
     Dates: start: 20080101
  2. TEGRETOL [Concomitant]
     Route: 065
  3. FOSAMAX [Concomitant]
     Route: 065
  4. VITAMIN D [Concomitant]
     Route: 065
  5. LOVAZA [Concomitant]
     Route: 065
  6. SAM'S CLUB BABY ASPIRIN [Concomitant]
     Route: 065
  7. MUSCLE RELAXER [Concomitant]
     Route: 065

REACTIONS (1)
  - ABDOMINAL DISCOMFORT [None]
